FAERS Safety Report 22311615 (Version 1)
Quarter: 2023Q2

REPORT INFORMATION
  Report Type: Spontaneous
  Country: CN (occurrence: CN)
  Receive Date: 20230511
  Receipt Date: 20230511
  Transmission Date: 20230722
  Serious: Yes (Hospitalization)
  Sender: FDA-Public Use
  Company Number: CN-BAYER-2023A064301

PATIENT
  Age: 72 Year
  Sex: Male
  Weight: 70 kg

DRUGS (1)
  1. XARELTO [Suspect]
     Active Substance: RIVAROXABAN
     Indication: Arteriosclerosis coronary artery
     Dosage: 20 MG, QD
     Route: 048
     Dates: start: 20230214, end: 20230416

REACTIONS (4)
  - Productive cough [Unknown]
  - Pyrexia [Unknown]
  - Epistaxis [Recovered/Resolved]
  - Off label use [Unknown]

NARRATIVE: CASE EVENT DATE: 20230101
